FAERS Safety Report 13646407 (Version 1)
Quarter: 2017Q2

REPORT INFORMATION
  Report Type: Report from Study
  Country: US (occurrence: US)
  Receive Date: 20170613
  Receipt Date: 20170613
  Transmission Date: 20170830
  Serious: Yes (Other)
  Sender: FDA-Public Use
  Company Number: US-GILEAD-2017-0277173

PATIENT
  Age: 40 Year
  Sex: Female

DRUGS (4)
  1. AMBRISENTAN [Suspect]
     Active Substance: AMBRISENTAN
     Indication: PRODUCT USED FOR UNKNOWN INDICATION
     Dosage: 5 MG, QD
     Route: 065
  2. TYVASO [Concomitant]
     Active Substance: TREPROSTINIL
  3. ADCIRCA [Concomitant]
     Active Substance: TADALAFIL
  4. OXYGEN. [Concomitant]
     Active Substance: OXYGEN

REACTIONS (4)
  - Cough [Recovering/Resolving]
  - Cardiac operation [Unknown]
  - Dyspnoea [Recovering/Resolving]
  - Chest pain [Recovering/Resolving]
